FAERS Safety Report 19469041 (Version 1)
Quarter: 2021Q2

REPORT INFORMATION
  Report Type: Spontaneous
  Country: GB (occurrence: GB)
  Receive Date: 20210628
  Receipt Date: 20210628
  Transmission Date: 20210717
  Serious: Yes (Other)
  Sender: FDA-Public Use
  Company Number: GB-TEVA-2021-GB-1924714

PATIENT
  Age: 54 Year
  Sex: Female
  Weight: 63.5 kg

DRUGS (21)
  1. ETOPOSIDE. [Suspect]
     Active Substance: ETOPOSIDE
     Indication: NEOPLASM MALIGNANT
     Route: 065
  2. PACLITAXEL. [Suspect]
     Active Substance: PACLITAXEL
     Indication: NEOPLASM MALIGNANT
     Route: 065
  3. CHLORPHENAMINE [Concomitant]
     Active Substance: CHLORPHENIRAMINE MALEATE
     Dosage: 10 MG
     Dates: start: 20200325, end: 20200325
  4. FAMOTIDINE. [Concomitant]
     Active Substance: FAMOTIDINE
     Dosage: 40 MG
     Dates: start: 20200212, end: 20200212
  5. RANITIDINE. [Concomitant]
     Active Substance: RANITIDINE
     Dosage: 50 MG
     Dates: start: 20200304, end: 20200304
  6. RANITIDINE. [Concomitant]
     Active Substance: RANITIDINE
     Dosage: 50 MG
     Dates: start: 20200325, end: 20200325
  7. CARBOPLATIN. [Suspect]
     Active Substance: CARBOPLATIN
     Indication: NEOPLASM MALIGNANT
     Route: 065
  8. BEVACIZUMAB. [Suspect]
     Active Substance: BEVACIZUMAB
     Indication: NEOPLASM MALIGNANT
     Route: 065
  9. ATEZOLIZUMAB. [Suspect]
     Active Substance: ATEZOLIZUMAB
     Indication: NEOPLASM MALIGNANT
     Dosage: 1200 MG
     Route: 041
     Dates: start: 20200204
  10. DENOSUMAB [Concomitant]
     Active Substance: DENOSUMAB
     Indication: BONE PAIN
     Dates: start: 20200803
  11. ATEZOLIZUMAB. [Suspect]
     Active Substance: ATEZOLIZUMAB
     Indication: NEOPLASM MALIGNANT
     Dosage: 1200 MG
     Route: 041
     Dates: start: 20200212, end: 20200415
  12. CYCLIZINE [Concomitant]
     Active Substance: CYCLIZINE
     Indication: NAUSEA
     Dates: start: 20190524
  13. MORPHINE [Concomitant]
     Active Substance: MORPHINE
     Indication: PAIN IN EXTREMITY
     Dates: start: 20200829
  14. DEXAMETHASONE. [Concomitant]
     Active Substance: DEXAMETHASONE
     Indication: NAUSEA
     Dosage: 20 MG
     Dates: start: 20200325, end: 20200325
  15. ONDANSETRON [Concomitant]
     Active Substance: ONDANSETRON
     Dosage: 8 MG
     Dates: start: 20200212, end: 20200212
  16. ATEZOLIZUMAB. [Suspect]
     Active Substance: ATEZOLIZUMAB
     Indication: NEOPLASM MALIGNANT
     Dosage: 1200 MG
     Route: 041
     Dates: start: 20200513, end: 20200715
  17. CHLORPHENAMINE [Concomitant]
     Active Substance: CHLORPHENIRAMINE MALEATE
     Dosage: 10 MG
     Dates: start: 20200304, end: 20200304
  18. DEXAMETHASONE. [Concomitant]
     Active Substance: DEXAMETHASONE
     Indication: NAUSEA
     Dosage: 20 MG
     Dates: start: 20200304, end: 20200304
  19. DEXAMETHASONE. [Concomitant]
     Active Substance: DEXAMETHASONE
     Indication: NAUSEA
     Dosage: 1 MILLIGRAM DAILY;
     Dates: start: 20200504
  20. FILGRASTIM [Suspect]
     Active Substance: FILGRASTIM
     Indication: WHITE BLOOD CELL COUNT DECREASED
     Route: 065
     Dates: start: 20200512, end: 20200515
  21. LOPERAMIDE [Concomitant]
     Active Substance: LOPERAMIDE
     Indication: DIARRHOEA
     Dates: start: 20200601

REACTIONS (14)
  - Decreased appetite [Not Recovered/Not Resolved]
  - Blood magnesium decreased [Recovering/Resolving]
  - Haemoglobin decreased [Recovered/Resolved]
  - White blood cell count decreased [Recovered/Resolved]
  - Anaemia [Not Recovered/Not Resolved]
  - Diarrhoea [Unknown]
  - Vomiting [Recovering/Resolving]
  - White blood cell count decreased [Recovered/Resolved]
  - Weight decreased [Recovered/Resolved]
  - Haemoglobin decreased [Not Recovered/Not Resolved]
  - Haemoglobin decreased [Recovered/Resolved]
  - Nausea [Not Recovered/Not Resolved]
  - Autoimmune haemolytic anaemia [Not Recovered/Not Resolved]
  - Platelet count decreased [Unknown]

NARRATIVE: CASE EVENT DATE: 20200427
